FAERS Safety Report 4732453-3 (Version None)
Quarter: 2005Q3

REPORT INFORMATION
  Report Type: 
  Country: None (occurrence: None)
  Receive Date: 20050801
  Receipt Date: 20050718
  Transmission Date: 20060218
  Serious: Yes (Hospitalization)
  Sender: FDA-Public Use
  Company Number: 200403207

PATIENT
  Age: 63 Year
  Sex: Female

DRUGS (5)
  1. BOTOX COSMETIC [Suspect]
     Indication: SKIN WRINKLING
     Dosage: 37.5 UNITS ONCE IM
     Route: 030
     Dates: start: 20040322
  2. BOTOX COSMETIC [Suspect]
     Dosage: 10 UNITS ONCE IM
     Route: 030
     Dates: start: 20040324
  3. SUDAFED 12 HOUR [Concomitant]
  4. ASPIRIN [Concomitant]
  5. DYAZIDE [Concomitant]

REACTIONS (21)
  - BLEPHARITIS [None]
  - BRANCHIAL CLEFT CYST [None]
  - BRANCHIAL CYST [None]
  - CONJUNCTIVITIS [None]
  - CYST [None]
  - DACRYOSTENOSIS ACQUIRED [None]
  - DIABETES MELLITUS [None]
  - DRUG HYPERSENSITIVITY [None]
  - FACIAL DYSMORPHISM [None]
  - FACIAL PARESIS [None]
  - HYPERTHYROIDISM [None]
  - INFECTED CYST [None]
  - KERATOCONJUNCTIVITIS SICCA [None]
  - MEAN PLATELET VOLUME DECREASED [None]
  - METASTATIC SQUAMOUS CELL CARCINOMA [None]
  - PAROTID ABSCESS [None]
  - PAROTITIS [None]
  - SCAR [None]
  - SINUSITIS [None]
  - TUBERCULOSIS [None]
  - WOUND INFECTION STAPHYLOCOCCAL [None]
